FAERS Safety Report 18974086 (Version 1)
Quarter: 2021Q1

REPORT INFORMATION
  Report Type: Spontaneous
  Country: FR (occurrence: FR)
  Receive Date: 20210305
  Receipt Date: 20210305
  Transmission Date: 20210420
  Serious: Yes (Death, Life-Threatening, Other)
  Sender: FDA-Public Use
  Company Number: FR-SUN PHARMACEUTICAL INDUSTRIES LTD-2021R1-284372

PATIENT
  Age: 37 Year
  Sex: Male

DRUGS (1)
  1. OXYCODONE [Suspect]
     Active Substance: OXYCODONE
     Indication: PRODUCT USED FOR UNKNOWN INDICATION
     Dosage: UNK
     Route: 065

REACTIONS (16)
  - Hyperkalaemia [Unknown]
  - Disseminated intravascular coagulation [Unknown]
  - Loss of consciousness [Unknown]
  - Hyperhidrosis [Unknown]
  - Acute kidney injury [Recovering/Resolving]
  - Miosis [Unknown]
  - Metabolic acidosis [Unknown]
  - Seizure [Unknown]
  - Bradypnoea [Unknown]
  - Rhabdomyolysis [Unknown]
  - Hepatic failure [Recovering/Resolving]
  - Toxicity to various agents [Fatal]
  - Coma [Unknown]
  - Hypoxia [Unknown]
  - Hyperthermia [Recovered/Resolved]
  - Hyperlactacidaemia [Unknown]
